FAERS Safety Report 16583477 (Version 1)
Quarter: 2019Q3

REPORT INFORMATION
  Report Type: Spontaneous
  Country: US (occurrence: US)
  Receive Date: 20190717
  Receipt Date: 20190717
  Transmission Date: 20191004
  Serious: No
  Sender: FDA-Public Use
  Company Number: US-PFIZER INC-2019303596

PATIENT

DRUGS (3)
  1. ALPRAZOLAM. [Concomitant]
     Active Substance: ALPRAZOLAM
     Indication: ANXIETY
     Dosage: UNK UNK, DAILY, (HALF TO ONE TABLET), (0.25 MG,2 IN 1 D)
     Route: 048
  2. BIAXIN [Suspect]
     Active Substance: CLARITHROMYCIN
     Dosage: UNK
  3. LYRICA [Suspect]
     Active Substance: PREGABALIN
     Indication: FIBROMYALGIA
     Dosage: 525 MG, DAILY (2 CAP BY MOUTH IN MORNING, 2 CAP MID DAY AND 3 CAP AT NIGHT)
     Route: 048

REACTIONS (1)
  - Drug hypersensitivity [Unknown]
